FAERS Safety Report 8334883-X (Version None)
Quarter: 2012Q2

REPORT INFORMATION
  Report Type: 
  Country: None (occurrence: None)
  Receive Date: 20120503
  Receipt Date: 20120430
  Transmission Date: 20120825
  Serious: No
  Sender: FDA-Public Use
  Company Number: US-B.I. PHARMACEUTICALS,INC./RIDGEFIELD-2012-BP-09931BP

PATIENT
  Age: 54 Year
  Sex: Male

DRUGS (2)
  1. BUISTUO [Concomitant]
  2. TRADJENTA [Suspect]

REACTIONS (2)
  - RHINORRHOEA [None]
  - SOMNOLENCE [None]
